FAERS Safety Report 6080013-7 (Version None)
Quarter: 2009Q1

REPORT INFORMATION
  Report Type: 
  Country: None (occurrence: None)
  Receive Date: 20090217
  Receipt Date: 20090207
  Transmission Date: 20090719
  Serious: Yes (Other)
  Sender: FDA-Public Use
  Company Number: US-AVENTIS-200911041US

PATIENT
  Sex: Female

DRUGS (15)
  1. LANTUS [Suspect]
     Dosage: DOSE: 30-38 UNITS
     Route: 058
     Dates: start: 20040101
  2. LANTUS [Suspect]
     Dosage: DOSE: 30-38 UNITS
     Route: 058
     Dates: start: 20040101
  3. OPTICLIK (INSULIN INJECTION PEN) [Suspect]
  4. HUMALOG [Concomitant]
     Route: 058
  5. FOLTX                              /01502401/ [Concomitant]
     Dosage: DOSE: 1 TAB
  6. SYNTHROID [Concomitant]
  7. COREG [Concomitant]
  8. LASIX [Concomitant]
  9. TRENTAL [Concomitant]
  10. PREDNISONE [Concomitant]
  11. ZOCOR [Concomitant]
  12. ASPIRIN [Concomitant]
     Dosage: DOSE: 1 TAB
  13. AMBIEN [Concomitant]
     Dosage: DOSE: 1 TAB
  14. PROZAC [Concomitant]
  15. BONIVA [Concomitant]
     Dosage: DOSE: 1 TAB

REACTIONS (1)
  - CATARACT [None]
